FAERS Safety Report 10085701 (Version 17)
Quarter: 2016Q1

REPORT INFORMATION
  Report Type: Spontaneous
  Country: CA (occurrence: CA)
  Receive Date: 20140418
  Receipt Date: 20160224
  Transmission Date: 20160525
  Serious: Yes (Hospitalization, Other)
  Sender: FDA-Public Use
  Company Number: CA-ROCHE-1385615

PATIENT
  Age: 64 Year
  Sex: Female

DRUGS (29)
  1. XOLAIR [Suspect]
     Active Substance: OMALIZUMAB
     Route: 058
     Dates: start: 20140211
  2. XOLAIR [Suspect]
     Active Substance: OMALIZUMAB
     Route: 058
     Dates: start: 20140826
  3. XOLAIR [Suspect]
     Active Substance: OMALIZUMAB
     Route: 058
     Dates: start: 20140902
  4. XOLAIR [Suspect]
     Active Substance: OMALIZUMAB
     Route: 058
     Dates: start: 20141028
  5. D-TABS [Concomitant]
     Active Substance: CHOLECALCIFEROL
  6. CYCLOBENZAPRINE [Concomitant]
     Active Substance: CYCLOBENZAPRINE
  7. LASIX [Concomitant]
     Active Substance: FUROSEMIDE
  8. FLUCONAZOLE. [Concomitant]
     Active Substance: FLUCONAZOLE
  9. APO-CALCITONIN [Concomitant]
     Active Substance: CALCITONIN
     Route: 045
  10. PULMICORT TURBUHALER [Concomitant]
     Active Substance: BUDESONIDE
  11. CRESTOR [Concomitant]
     Active Substance: ROSUVASTATIN CALCIUM
  12. LOSEC [Concomitant]
     Active Substance: OMEPRAZOLE
  13. XOLAIR [Suspect]
     Active Substance: OMALIZUMAB
     Indication: BRONCHITIS
     Route: 058
     Dates: start: 20100211
  14. XOLAIR [Suspect]
     Active Substance: OMALIZUMAB
     Route: 058
     Dates: start: 20150512
  15. XOLAIR [Suspect]
     Active Substance: OMALIZUMAB
     Route: 058
     Dates: start: 20151027
  16. VENTOLIN [Concomitant]
     Active Substance: ALBUTEROL SULFATE
  17. NORVASC [Concomitant]
     Active Substance: AMLODIPINE BESYLATE
  18. TRAMCET [Concomitant]
     Active Substance: ACETAMINOPHEN\TRAMADOL
  19. XOLAIR [Suspect]
     Active Substance: OMALIZUMAB
     Indication: ASTHMA
     Route: 058
     Dates: start: 20090826
  20. ACTONEL [Concomitant]
     Active Substance: RISEDRONATE SODIUM
  21. SYMBICORT [Concomitant]
     Active Substance: BUDESONIDE\FORMOTEROL FUMARATE DIHYDRATE
  22. ZESTRIL [Concomitant]
     Active Substance: LISINOPRIL
  23. XOLAIR [Suspect]
     Active Substance: OMALIZUMAB
     Route: 058
     Dates: start: 20140114
  24. XOLAIR [Suspect]
     Active Substance: OMALIZUMAB
     Route: 058
     Dates: start: 20141125
  25. XOLAIR [Suspect]
     Active Substance: OMALIZUMAB
     Route: 058
     Dates: start: 20141223
  26. VASOTEC [Concomitant]
     Active Substance: ENALAPRIL MALEATE
  27. DILTIAZEM [Concomitant]
     Active Substance: DILTIAZEM
  28. SINGULAIR [Concomitant]
     Active Substance: MONTELUKAST SODIUM
  29. ALVESCO [Concomitant]
     Active Substance: CICLESONIDE

REACTIONS (31)
  - Spinal compression fracture [Not Recovered/Not Resolved]
  - Asthma [Unknown]
  - Pain [Unknown]
  - Product use issue [Unknown]
  - Fall [Unknown]
  - Sinus disorder [Unknown]
  - Body temperature decreased [Not Recovered/Not Resolved]
  - Back injury [Not Recovered/Not Resolved]
  - Malaise [Unknown]
  - Heart rate increased [Unknown]
  - Chills [Unknown]
  - Blood pressure increased [Unknown]
  - Respiratory rate increased [Not Recovered/Not Resolved]
  - Urinary tract infection [Unknown]
  - Upper respiratory tract infection [Unknown]
  - Nasopharyngitis [Not Recovered/Not Resolved]
  - Bronchitis [Unknown]
  - Chest discomfort [Unknown]
  - Cough [Not Recovered/Not Resolved]
  - Mobility decreased [Unknown]
  - Lung infection [Not Recovered/Not Resolved]
  - Diarrhoea [Unknown]
  - Sinusitis [Recovering/Resolving]
  - Drug ineffective [Unknown]
  - Dyspnoea [Not Recovered/Not Resolved]
  - Blood pressure decreased [Unknown]
  - Cellulitis [Unknown]
  - Pleural effusion [Unknown]
  - Lower respiratory tract infection [Not Recovered/Not Resolved]
  - Hyperhidrosis [Unknown]
  - Gait disturbance [Unknown]

NARRATIVE: CASE EVENT DATE: 201204
